FAERS Safety Report 9293779 (Version 2)
Quarter: 2013Q4

REPORT INFORMATION
  Report Type: Report from Study
  Country: CA (occurrence: CA)
  Receive Date: 20130516
  Receipt Date: 20131022
  Transmission Date: 20140711
  Serious: Yes (Other)
  Sender: FDA-Public Use
  Company Number: CA-UCBSA-081126

PATIENT
  Age: 35 Year
  Sex: Female
  Weight: 63.5 kg

DRUGS (5)
  1. CIMZIA [Suspect]
     Indication: RHEUMATOID ARTHRITIS
     Route: 058
     Dates: start: 20120329
  2. FOLIC ACID [Concomitant]
     Dosage: OD 6/7
     Route: 048
     Dates: start: 2007
  3. METHOTREXATE [Concomitant]
     Indication: RHEUMATOID ARTHRITIS
     Route: 058
     Dates: start: 2007
  4. PLAQUENIL [Concomitant]
     Indication: RHEUMATOID ARTHRITIS
     Route: 048
     Dates: start: 2007
  5. CELEBREX [Concomitant]
     Indication: RHEUMATOID ARTHRITIS
     Dosage: OD PRN
     Route: 048

REACTIONS (2)
  - Abortion induced [Recovered/Resolved]
  - Pregnancy [Recovered/Resolved]
